FAERS Safety Report 6993867-4 (Version None)
Quarter: 2010Q3

REPORT INFORMATION
  Report Type: 
  Country: None (occurrence: None)
  Receive Date: 20100917
  Receipt Date: 20091222
  Transmission Date: 20110219
  Serious: Yes (Other)
  Sender: FDA-Public Use
  Company Number: US-ASTRAZENECA-2009UW20572

PATIENT
  Age: 40 Year
  Sex: Female
  Weight: 103.4 kg

DRUGS (16)
  1. SEROQUEL [Suspect]
     Indication: PSYCHOTIC DISORDER
     Route: 048
  2. SEROQUEL [Suspect]
     Indication: BIPOLAR DISORDER
     Route: 048
  3. SEROQUEL [Suspect]
     Route: 048
     Dates: start: 20020701, end: 20060101
  4. SEROQUEL [Suspect]
     Route: 048
     Dates: start: 20020701, end: 20060101
  5. BUSPAR [Concomitant]
     Indication: BIPOLAR DISORDER
     Dates: start: 19970101
  6. PERPHENAZINE [Concomitant]
     Indication: BIPOLAR DISORDER
  7. LAMOTRIGINE [Concomitant]
     Indication: BIPOLAR DISORDER
     Dates: start: 20050101
  8. VENLAFAXINE [Concomitant]
     Dates: start: 20050101
  9. PROZAC [Concomitant]
     Indication: DEPRESSION
  10. RITALIN [Concomitant]
     Indication: DEPRESSION
     Dates: start: 20000101
  11. DEPAKOTE [Concomitant]
     Indication: DEPRESSION
     Dates: start: 20000101
  12. TRAZODONE HCL [Concomitant]
     Indication: DEPRESSION
     Dates: start: 20000101
  13. BENADRYL [Concomitant]
     Indication: SLEEP DISORDER
     Dates: start: 20000101, end: 20030101
  14. LOVASTATIN [Concomitant]
     Indication: HYPERLIPIDAEMIA
     Dates: start: 20010101
  15. LOVASTATIN [Concomitant]
     Indication: BLOOD TRIGLYCERIDES INCREASED
     Dates: start: 20010101
  16. RISPERDAL [Concomitant]
     Dates: start: 19930101, end: 20010101

REACTIONS (7)
  - DRUG EFFECT DECREASED [None]
  - FATIGUE [None]
  - HYSTERECTOMY [None]
  - KETOACIDOSIS [None]
  - PANCREATITIS [None]
  - TYPE 2 DIABETES MELLITUS [None]
  - WEIGHT INCREASED [None]
